FAERS Safety Report 18121142 (Version 3)
Quarter: 2020Q3

REPORT INFORMATION
  Report Type: Report from Study
  Country: AU (occurrence: AU)
  Receive Date: 20200807
  Receipt Date: 20200911
  Transmission Date: 20201104
  Serious: Yes (Death, Hospitalization)
  Sender: FDA-Public Use
  Company Number: AU-BEIGENE AUS PTY LTD-BGN-2020-001041

PATIENT

DRUGS (14)
  1. LORAZEPAM. [Concomitant]
     Active Substance: LORAZEPAM
     Indication: SEDATION
     Dosage: 1 MG, STAT
     Route: 058
     Dates: start: 20200115, end: 20200115
  2. ALLOPURINOL. [Concomitant]
     Active Substance: ALLOPURINOL
     Indication: PROPHYLAXIS
     Dosage: 100 MILLIGRAM, QD
     Route: 048
     Dates: start: 20190911, end: 20200626
  3. PARACETAMOL [Concomitant]
     Active Substance: ACETAMINOPHEN
     Indication: HEADACHE
     Dosage: 1 GRAM, BID, IV OR PO
     Dates: start: 20191024, end: 20200709
  4. LEVETIRACETAM. [Concomitant]
     Active Substance: LEVETIRACETAM
     Indication: SUBDURAL HAEMATOMA
     Dosage: 500 MILLIGRAM, BID, IV OR PO
     Dates: start: 20191030, end: 20200625
  5. THIAMINE. [Concomitant]
     Active Substance: THIAMINE
     Indication: ALCOHOL ABUSE
     Dosage: 100 MILLIGRAM, QD
     Route: 048
     Dates: start: 20190222, end: 20200723
  6. TISLELIZUMAB. [Suspect]
     Active Substance: TISLELIZUMAB
     Indication: LYMPHOMA
     Dosage: 200 MILLIGRAM, Q3WK
     Route: 042
     Dates: start: 20190318, end: 20200409
  7. FUROSEMIDE. [Concomitant]
     Active Substance: FUROSEMIDE
     Indication: OEDEMA PERIPHERAL
     Dosage: 20 MILLIGRAM, QD
     Route: 048
     Dates: start: 20200116, end: 20200123
  8. TARGIN [Concomitant]
     Active Substance: NALOXONE HYDROCHLORIDE\OXYCODONE HYDROCHLORIDE
     Indication: BACK PAIN
     Dosage: 25/12.5 MG, BID
     Route: 048
     Dates: start: 20191023, end: 20200730
  9. BGB?3111 [Suspect]
     Active Substance: ZANUBRUTINIB
     Indication: LYMPHOMA
     Dosage: 160 MILLIGRAM, BID
     Route: 048
     Dates: start: 20190318, end: 20200621
  10. MIRTAZEPINE TEVA [Concomitant]
     Active Substance: MIRTAZAPINE
     Indication: AGITATION
     Dosage: 15 MILLIGRAM, QD
     Route: 048
     Dates: start: 20190913, end: 20200729
  11. BGB?3111 [Suspect]
     Active Substance: ZANUBRUTINIB
     Dosage: UNK
     Dates: start: 20200630, end: 20200630
  12. CHOLECALCIFEROL [Concomitant]
     Active Substance: CHOLECALCIFEROL
     Indication: MEDICAL DIET
     Dosage: 2 TABS, QD
     Route: 048
     Dates: start: 20191023, end: 20200625
  13. ENTECAVIR. [Concomitant]
     Active Substance: ENTECAVIR
     Indication: PROPHYLAXIS
     Dosage: 0.5 MILLIGRAM, QD
     Route: 048
     Dates: start: 20200328, end: 20200622
  14. VALACYCLOVIR [Concomitant]
     Active Substance: VALACYCLOVIR HYDROCHLORIDE
     Indication: PROPHYLAXIS
     Dosage: 500 MILLIGRAM, QD
     Route: 048
     Dates: start: 20190328, end: 20200621

REACTIONS (1)
  - Pemphigoid [Not Recovered/Not Resolved]

NARRATIVE: CASE EVENT DATE: 20200622
